FAERS Safety Report 8807551 (Version 1)
Quarter: 2012Q4

REPORT INFORMATION
  Report Type: 
  Country: US (occurrence: US)
  Receive Date: 20120925
  Receipt Date: 20120925
  Transmission Date: 20130627
  Serious: Yes (Other)
  Sender: FDA-Public Use
  Company Number: US-PFIZER INC-2012232806

PATIENT
  Age: 61 Year
  Sex: Male
  Weight: 71.2 kg

DRUGS (2)
  1. AZITHROMYCIN [Suspect]
     Indication: COUGH
     Dosage: 500 mg, 1x/day
     Route: 048
     Dates: start: 20120829, end: 20120831
  2. AZITHROMYCIN [Suspect]
     Indication: NASOPHARYNGITIS

REACTIONS (6)
  - Haematochezia [Recovered/Resolved]
  - Irritable bowel syndrome [Not Recovered/Not Resolved]
  - Anorectal discomfort [Not Recovered/Not Resolved]
  - Anorectal disorder [Not Recovered/Not Resolved]
  - Haemorrhoids [Not Recovered/Not Resolved]
  - Haemorrhoids [Not Recovered/Not Resolved]
